FAERS Safety Report 5260294-X (Version None)
Quarter: 2007Q1

REPORT INFORMATION
  Report Type: 
  Country: None (occurrence: None)
  Receive Date: 20070309
  Receipt Date: 20060627
  Transmission Date: 20070707
  Serious: No
  Sender: FDA-Public Use
  Company Number: US-GLAXOSMITHKLINE-A0610257A

PATIENT
  Age: 50 Year

DRUGS (1)
  1. NICORETTE [Suspect]

REACTIONS (4)
  - DYSPEPSIA [None]
  - FEELING ABNORMAL [None]
  - ILL-DEFINED DISORDER [None]
  - STOMACH DISCOMFORT [None]
